FAERS Safety Report 7928320-4 (Version None)
Quarter: 2011Q4

REPORT INFORMATION
  Report Type: 
  Country: None (occurrence: None)
  Receive Date: 20111118
  Receipt Date: 20111109
  Transmission Date: 20120403
  Serious: Yes (Hospitalization)
  Sender: FDA-Public Use
  Company Number: CA-ABBOTT-11P-028-0871819-00

PATIENT
  Sex: Female
  Weight: 54.48 kg

DRUGS (17)
  1. HUMIRA [Suspect]
     Indication: CROHN'S DISEASE
     Route: 058
     Dates: start: 20071123
  2. PROVERA [Concomitant]
     Indication: MENOPAUSE
  3. VITAMIN B-12 [Concomitant]
     Indication: VITAMIN SUPPLEMENTATION
     Route: 058
     Dates: start: 19860101
  4. ELAVIL [Concomitant]
     Indication: PAIN
  5. PANTOPRAZOLE SODIUM [Concomitant]
     Indication: PROPHYLAXIS
  6. ALENDRONATE SODIUM [Concomitant]
     Indication: BONE DISORDER
     Route: 048
     Dates: start: 20110801
  7. SUPERDROL [Concomitant]
     Indication: PAIN
     Route: 048
     Dates: start: 20010101
  8. PREDNISONE TAB [Concomitant]
     Indication: PRODUCT USED FOR UNKNOWN INDICATION
  9. PROVERA [Concomitant]
     Indication: HORMONE REPLACEMENT THERAPY
     Route: 048
     Dates: start: 19990101
  10. ESTROGEL [Concomitant]
     Indication: HORMONE REPLACEMENT THERAPY
     Route: 061
     Dates: start: 19990101
  11. ZYPREXA [Concomitant]
     Indication: PSYCHOTIC DISORDER
     Route: 048
     Dates: start: 20080101
  12. BIOCAL-D [Concomitant]
     Indication: BONE DISORDER
     Route: 048
     Dates: start: 20110801
  13. QUESTRAN [Concomitant]
     Indication: LIVER DISORDER
     Route: 048
     Dates: start: 19860101
  14. WELLBUTRIN [Concomitant]
     Indication: DEPRESSION
     Route: 048
     Dates: start: 19950101
  15. ELAVIL [Concomitant]
     Indication: DEPRESSION
     Route: 048
     Dates: start: 19950101
  16. PANTOPRAZOLE SODIUM [Concomitant]
     Indication: GASTRIC DISORDER
     Route: 048
     Dates: start: 20000101
  17. ATIVAN [Concomitant]
     Indication: SLEEP DISORDER
     Route: 048
     Dates: start: 19960101

REACTIONS (4)
  - MALABSORPTION [None]
  - ASTHENIA [None]
  - MOVEMENT DISORDER [None]
  - BLOOD POTASSIUM DECREASED [None]
